FAERS Safety Report 8537654-4 (Version None)
Quarter: 2012Q3

REPORT INFORMATION
  Report Type: 
  Country: None (occurrence: None)
  Receive Date: 20120725
  Receipt Date: 20120718
  Transmission Date: 20120928
  Serious: Yes (Hospitalization, Other)
  Sender: FDA-Public Use
  Company Number: PHHY2012CA017473

PATIENT
  Sex: Male

DRUGS (8)
  1. LIORESAL [Concomitant]
     Dosage: 10 MG, TID
     Route: 048
  2. PANTOPRAZOLE SODIUM [Concomitant]
     Dosage: 40 MG, UNK
  3. GILENYA [Suspect]
     Indication: RELAPSING-REMITTING MULTIPLE SCLEROSIS
     Dosage: 0.5 MG, DAILY
     Route: 048
     Dates: start: 20120217
  4. DEXAMETHASONE [Concomitant]
     Dosage: 1 MG, UNK
  5. FLOMAX [Concomitant]
     Dosage: 0.4 MG, UNK
  6. GRAVOL TAB [Concomitant]
     Dosage: 50 MG, Q6H
  7. SERAX [Concomitant]
  8. HEPARIN [Concomitant]
     Dosage: 5000 U, BID
     Route: 058

REACTIONS (20)
  - AGGRESSION [None]
  - HALLUCINATION [None]
  - DEPRESSED MOOD [None]
  - IRRITABILITY [None]
  - URINARY RETENTION [None]
  - MULTIPLE SCLEROSIS RELAPSE [None]
  - DYSARTHRIA [None]
  - PARANOIA [None]
  - DELUSION [None]
  - PSYCHIATRIC SYMPTOM [None]
  - HOSTILITY [None]
  - PARAESTHESIA [None]
  - SUBSTANCE-INDUCED PSYCHOTIC DISORDER [None]
  - MOOD ALTERED [None]
  - FACIAL PARESIS [None]
  - HYPOAESTHESIA [None]
  - AMNESIA [None]
  - AGITATION [None]
  - ACNE [None]
  - RASH GENERALISED [None]
